FAERS Safety Report 6059106-6 (Version None)
Quarter: 2009Q1

REPORT INFORMATION
  Report Type: 
  Country: None (occurrence: None)
  Receive Date: 20090130
  Receipt Date: 20090120
  Transmission Date: 20090719
  Serious: Yes (Disabling, Other)
  Sender: FDA-Public Use
  Company Number: BR-PFIZER INC-2009160563

PATIENT

DRUGS (3)
  1. EPELIN [Suspect]
     Indication: CONVULSION
     Dosage: 100 MG, 1X/DAY
     Route: 048
     Dates: start: 20050101
  2. PHENOBARBITAL [Suspect]
     Indication: CONVULSION
  3. HIDANTAL [Suspect]
     Indication: CONVULSION

REACTIONS (4)
  - CONVULSION [None]
  - DISABILITY [None]
  - DRUG INTOLERANCE [None]
  - OEDEMA PERIPHERAL [None]
